FAERS Safety Report 13770755 (Version 3)
Quarter: 2019Q1

REPORT INFORMATION
  Report Type: Spontaneous
  Country: CN (occurrence: CN)
  Receive Date: 20170720
  Receipt Date: 20190225
  Transmission Date: 20190417
  Serious: Yes (Hospitalization)
  Sender: FDA-Public Use
  Company Number: CN-SUN PHARMACEUTICAL INDUSTRIES LTD-2017R1-145688

PATIENT
  Age: 18 Year
  Sex: Female

DRUGS (1)
  1. PREDNISONE. [Suspect]
     Active Substance: PREDNISONE
     Indication: SYSTEMIC LUPUS ERYTHEMATOSUS
     Dosage: 30 MG, DAILY
     Route: 065

REACTIONS (3)
  - Nocardiosis [Recovered/Resolved]
  - Systemic bacterial infection [Recovered/Resolved]
  - Candida infection [Recovered/Resolved]
